FAERS Safety Report 5114314-3 (Version None)
Quarter: 2006Q3

REPORT INFORMATION
  Report Type: 
  Country: None (occurrence: None)
  Receive Date: 20060731
  Receipt Date: 20060504
  Transmission Date: 20061208
  Serious: No
  Sender: FDA-Public Use
  Company Number: 2006PV013251

PATIENT
  Age: 67 Year
  Sex: Male
  Weight: 104.3273 kg

DRUGS (14)
  1. BYETTA [Suspect]
     Indication: DIABETES MELLITUS NON-INSULIN-DEPENDENT
     Dosage: SEE IMAGE
     Route: 058
     Dates: start: 20060228, end: 20060101
  2. BYETTA [Suspect]
     Indication: DIABETES MELLITUS NON-INSULIN-DEPENDENT
     Dosage: SEE IMAGE
     Route: 058
     Dates: start: 20060401
  3. GLIPIZIDE [Concomitant]
  4. ACTOS [Concomitant]
  5. METFORMIN [Concomitant]
  6. AVANDIA [Concomitant]
  7. GLYBURIDE [Concomitant]
  8. FUROSEMIDE [Concomitant]
  9. TOPROL-XL [Concomitant]
  10. DIOVAN [Concomitant]
  11. KLOR-CON [Concomitant]
  12. ZOCOR [Concomitant]
  13. WARFARIN [Concomitant]
  14. KEPPRA [Concomitant]

REACTIONS (1)
  - CHROMATURIA [None]
